FAERS Safety Report 14093405 (Version 1)
Quarter: 2017Q4

REPORT INFORMATION
  Report Type: Spontaneous
  Country: US (occurrence: US)
  Receive Date: 20171016
  Receipt Date: 20171016
  Transmission Date: 20180321
  Serious: Yes (Disabling)
  Sender: FDA-Public Use
  Company Number: None

PATIENT
  Age: 43 Year
  Sex: Female
  Weight: 93.6 kg

DRUGS (7)
  1. CONCERTA [Concomitant]
     Active Substance: METHYLPHENIDATE HYDROCHLORIDE
  2. GABAPENTIN. [Concomitant]
     Active Substance: GABAPENTIN
  3. LISINOPRIL-HYDROCHLORATHIAZIDE [Concomitant]
  4. FISH OIL [Concomitant]
     Active Substance: FISH OIL
  5. ANASTRAZOLE [Concomitant]
     Active Substance: ANASTROZOLE
  6. TRINTELLIX [Suspect]
     Active Substance: VORTIOXETINE HYDROBROMIDE
     Indication: MAJOR DEPRESSION
     Dosage: ?          QUANTITY:1 TABLET(S);?
     Route: 048
     Dates: start: 20170508
  7. PROLIA [Concomitant]
     Active Substance: DENOSUMAB

REACTIONS (1)
  - Deafness neurosensory [None]

NARRATIVE: CASE EVENT DATE: 20170816
